FAERS Safety Report 7052822-9 (Version None)
Quarter: 2010Q4

REPORT INFORMATION
  Report Type: 
  Country: None (occurrence: None)
  Receive Date: 20101008
  Receipt Date: 20101001
  Transmission Date: 20110411
  Serious: Yes (Death, Hospitalization)
  Sender: FDA-Public Use
  Company Number: WAES 1010USA00085

PATIENT
  Age: 68 Year
  Sex: Female

DRUGS (15)
  1. VYTORIN [Suspect]
     Indication: ACUTE CORONARY SYNDROME
     Dosage: 10-40 MG/DAILY PO
     Route: 048
     Dates: start: 20100702, end: 20100725
  2. PLACEBO (UNSPECIFIED) [Suspect]
     Indication: ACUTE CORONARY SYNDROME
     Dosage: PO
     Route: 048
     Dates: start: 20100702, end: 20100725
  3. COMBIVENT [Concomitant]
  4. KLACID [Concomitant]
  5. LASIX [Concomitant]
  6. PLAVIX [Concomitant]
  7. PULMICORT [Concomitant]
  8. ROCEPHIN [Concomitant]
  9. ACETYLCYSTEINE [Concomitant]
  10. ASPIRIN [Concomitant]
  11. BICARBONATE [Concomitant]
  12. DOBUTAMINE [Concomitant]
  13. DOPAMINE HC1 [Concomitant]
  14. EPINEPHRINE [Concomitant]
  15. INSULIN [Concomitant]

REACTIONS (1)
  - RHABDOMYOLYSIS [None]
